FAERS Safety Report 8914418 (Version 1)
Quarter: 2012Q4

REPORT INFORMATION
  Report Type: 
  Country: BG (occurrence: BG)
  Receive Date: 20121119
  Receipt Date: 20121119
  Transmission Date: 20130627
  Serious: Yes (Hospitalization)
  Sender: FDA-Public Use
  Company Number: BG-BAYER-2012-112275

PATIENT
  Age: 62 Year
  Sex: Female

DRUGS (7)
  1. NEXAVAR [Suspect]
     Indication: RENAL CARCINOMA
     Dosage: 400 mg, BID (2x400 mg)
     Dates: start: 20120113, end: 20120913
  2. NEXAVAR [Suspect]
     Indication: RENAL CARCINOMA
     Dosage: 400 mg, BID (2x400 mg)
     Route: 048
     Dates: start: 20120913, end: 20121016
  3. DEXAMETHASONE [Concomitant]
     Indication: HYPERTENSION
     Dosage: UNK
     Route: 048
  4. BISOHEXAL [Concomitant]
     Indication: HYPERTENSION
     Dosage: 5 mg, TID
  5. ISOPTIN [Concomitant]
     Indication: HYPERTENSION
     Dosage: UNK
  6. FURANTHRIL [Concomitant]
     Indication: CHRONIC HEART FAILURE
     Dosage: UNK
     Dates: start: 20121026, end: 20121028
  7. LORISTA [Concomitant]
     Indication: HYPERTENSION
     Dosage: UNK

REACTIONS (2)
  - Haemoptysis [Unknown]
  - Aplastic anaemia [Recovered/Resolved]
